FAERS Safety Report 7903162-4 (Version None)
Quarter: 2011Q4

REPORT INFORMATION
  Report Type: 
  Country: None (occurrence: None)
  Receive Date: 20111108
  Receipt Date: 20111108
  Transmission Date: 20120403
  Serious: Yes (Hospitalization)
  Sender: FDA-Public Use
  Company Number: None

PATIENT
  Sex: Male
  Weight: 79 kg

DRUGS (8)
  1. RITUXIMAB [Suspect]
     Indication: MANTLE CELL LYMPHOMA
     Dosage: 720 MG, Q 3 MO, IV
     Route: 042
     Dates: start: 20060426, end: 20080122
  2. VINCRISTINE [Concomitant]
  3. INDUCTION CHEMOTHERAPY [Concomitant]
  4. DOXORUBICIN HCL [Concomitant]
  5. CYCLOPHOSPHAMIDE [Concomitant]
  6. DEXAMETHASONE [Concomitant]
  7. BORTEZOMIB [Concomitant]
  8. RITUXIMAB [Concomitant]

REACTIONS (3)
  - PNEUMONIA [None]
  - CLOSTRIDIAL INFECTION [None]
  - DISEASE RECURRENCE [None]
